FAERS Safety Report 7274586-6 (Version None)
Quarter: 2011Q1

REPORT INFORMATION
  Report Type: 
  Country: None (occurrence: None)
  Receive Date: 20110204
  Receipt Date: 20110126
  Transmission Date: 20110831
  Serious: Yes (Other)
  Sender: FDA-Public Use
  Company Number: US-GENZYME-FABR-1001785

PATIENT
  Sex: Female
  Weight: 55 kg

DRUGS (1)
  1. FABRAZYME [Suspect]
     Indication: FABRY'S DISEASE
     Dosage: 1 MG/KG, UNK
     Route: 042
     Dates: start: 20070901

REACTIONS (8)
  - CARDIAC VALVE DISEASE [None]
  - RENAL FAILURE [None]
  - BONE PAIN [None]
  - BACK PAIN [None]
  - NEPHROLITHIASIS [None]
  - HYPERCALCAEMIA [None]
  - METABOLIC ACIDOSIS [None]
  - TROPONIN INCREASED [None]
